FAERS Safety Report 5237989-7 (Version None)
Quarter: 2007Q1

REPORT INFORMATION
  Report Type: 
  Country: None (occurrence: None)
  Receive Date: 20070214
  Receipt Date: 20070202
  Transmission Date: 20070707
  Serious: Yes (Hospitalization)
  Sender: FDA-Public Use
  Company Number: AR-PFIZER INC-2006098996

PATIENT
  Sex: Male
  Weight: 76.8 kg

DRUGS (8)
  1. SU-011,248 [Suspect]
     Indication: RENAL CELL CARCINOMA STAGE UNSPECIFIED
     Route: 048
     Dates: start: 20060301, end: 20061030
  2. RABEPRAZOLE SODIUM [Concomitant]
     Route: 048
  3. ALLOPURINOL SODIUM [Concomitant]
     Route: 048
  4. ATORVASTATIN [Concomitant]
     Route: 048
  5. HYDROCORTISONE [Concomitant]
     Route: 048
  6. AMLODIPINE [Concomitant]
     Route: 048
  7. ATENOLOL [Concomitant]
     Route: 048
  8. FUROSEMIDE [Concomitant]
     Route: 048
     Dates: start: 20050101

REACTIONS (2)
  - HYPOCALCAEMIA [None]
  - HYPOMAGNESAEMIA [None]
